FAERS Safety Report 6230304-1 (Version None)
Quarter: 2009Q2

REPORT INFORMATION
  Report Type: 
  Country: None (occurrence: None)
  Receive Date: 20090615
  Receipt Date: 20090605
  Transmission Date: 20091009
  Serious: Yes (Death, Life-Threatening, Hospitalization)
  Sender: FDA-Public Use
  Company Number: FR-MERCK-0906FRA00020

PATIENT
  Age: 77 Year
  Sex: Male

DRUGS (4)
  1. PRIMAXIN [Suspect]
     Indication: PNEUMONIA
     Route: 042
     Dates: start: 20090101, end: 20090105
  2. LINEZOLID [Suspect]
     Indication: PNEUMONIA
     Route: 042
     Dates: start: 20090102, end: 20090105
  3. INVANZ [Suspect]
     Indication: PNEUMONIA
     Route: 042
     Dates: start: 20090105, end: 20090108
  4. VANCOMYCIN [Concomitant]
     Indication: PNEUMONIA
     Route: 065
     Dates: start: 20090101, end: 20090102

REACTIONS (1)
  - STATUS EPILEPTICUS [None]
